FAERS Safety Report 16405815 (Version 3)
Quarter: 2019Q3

REPORT INFORMATION
  Report Type: Spontaneous
  Country: ES (occurrence: ES)
  Receive Date: 20190607
  Receipt Date: 20190717
  Transmission Date: 20191004
  Serious: Yes (Hospitalization)
  Sender: FDA-Public Use
  Company Number: ES-INCYTE CORPORATION-2019IN005744

PATIENT

DRUGS (1)
  1. JAKAVI [Suspect]
     Active Substance: RUXOLITINIB
     Indication: PRIMARY MYELOFIBROSIS
     Dosage: UNK
     Route: 048

REACTIONS (3)
  - Urosepsis [Unknown]
  - Escherichia sepsis [Recovered/Resolved]
  - Anaemia [Recovered/Resolved]
